FAERS Safety Report 10110953 (Version 1)
Quarter: 2014Q2

REPORT INFORMATION
  Report Type: Spontaneous
  Country: FR (occurrence: FR)
  Receive Date: 20140425
  Receipt Date: 20140425
  Transmission Date: 20141212
  Serious: Yes (Hospitalization, Disabling)
  Sender: FDA-Public Use
  Company Number: FR-ASTRAZENECA-2014SE27167

PATIENT
  Age: 20085 Day
  Sex: Male

DRUGS (6)
  1. BRILIQUE [Suspect]
     Indication: ANGINA UNSTABLE
     Route: 048
     Dates: start: 20130414, end: 20130417
  2. BRILIQUE [Suspect]
     Indication: ANGINA UNSTABLE
     Route: 048
     Dates: start: 20130419
  3. PERINDOPRIL [Concomitant]
     Indication: ANGINA UNSTABLE
     Dosage: DAILY
     Route: 048
     Dates: start: 20130414
  4. TAHOR [Concomitant]
     Indication: ANGINA UNSTABLE
     Dosage: DAILY
     Route: 048
     Dates: start: 20130414
  5. EZETROL [Concomitant]
     Indication: ANGINA UNSTABLE
     Dosage: DAILY
     Route: 048
     Dates: start: 20130414
  6. KARDEGIC [Concomitant]
     Indication: ANGINA UNSTABLE
     Dosage: DAILY
     Route: 048
     Dates: start: 20130414

REACTIONS (2)
  - Thrombosis in device [Recovered/Resolved]
  - Drug dose omission [Recovered/Resolved]
